FAERS Safety Report 25166049 (Version 7)
Quarter: 2025Q2

REPORT INFORMATION
  Report Type: Report from Study
  Country: CA (occurrence: CA)
  Receive Date: 20250407
  Receipt Date: 20250623
  Transmission Date: 20250717
  Serious: Yes (Hospitalization, Other)
  Sender: CSL BEHRING
  Company Number: CA-BEH-2025200443

PATIENT
  Age: 79 Year
  Sex: Female
  Weight: 76.6 kg

DRUGS (17)
  1. HIZENTRA [Suspect]
     Active Substance: HUMAN IMMUNOGLOBULIN G
     Indication: Myasthenia gravis
     Dosage: 12 G, BIW
     Route: 058
     Dates: start: 20230111
  2. HIZENTRA [Suspect]
     Active Substance: HUMAN IMMUNOGLOBULIN G
     Dosage: 12 G, BIW
     Route: 058
     Dates: start: 20230111
  3. HIZENTRA [Suspect]
     Active Substance: HUMAN IMMUNOGLOBULIN G
     Dosage: 12 G, BIW
     Route: 058
     Dates: start: 20230111
  4. HIZENTRA [Suspect]
     Active Substance: HUMAN IMMUNOGLOBULIN G
     Route: 065
     Dates: start: 20250414
  5. HIZENTRA [Suspect]
     Active Substance: HUMAN IMMUNOGLOBULIN G
     Dosage: 12 G, BIW
     Route: 058
     Dates: start: 20230111
  6. HIZENTRA [Suspect]
     Active Substance: HUMAN IMMUNOGLOBULIN G
     Route: 058
     Dates: start: 20230111
  7. HIZENTRA [Suspect]
     Active Substance: HUMAN IMMUNOGLOBULIN G
     Route: 058
     Dates: start: 20230111
  8. PREDNISONE [Concomitant]
     Active Substance: PREDNISONE
  9. PANTOPRAZOLE [Concomitant]
     Active Substance: PANTOPRAZOLE
  10. NORVASC [Concomitant]
     Active Substance: AMLODIPINE BESYLATE
  11. EZETIMIBE [Concomitant]
     Active Substance: EZETIMIBE
  12. LEVOTHYROXINE SODIUM [Concomitant]
     Active Substance: LEVOTHYROXINE SODIUM
  13. RALOXIFENE [Concomitant]
     Active Substance: RALOXIFENE
  14. PERINDOPRIL [Concomitant]
     Active Substance: PERINDOPRIL
  15. MESTINON [Concomitant]
     Active Substance: PYRIDOSTIGMINE BROMIDE
  16. IMODIUM [Concomitant]
     Active Substance: LOPERAMIDE HYDROCHLORIDE
     Indication: Diarrhoea
  17. LEVOTHYROXINE [Concomitant]
     Active Substance: LEVOTHYROXINE

REACTIONS (40)
  - Colitis [Unknown]
  - Haemorrhage [Unknown]
  - Abdominal pain [Unknown]
  - Scar [Unknown]
  - Gastrointestinal haemorrhage [Unknown]
  - General physical health deterioration [Unknown]
  - Condition aggravated [Unknown]
  - Visual impairment [Unknown]
  - Fine motor skill dysfunction [Unknown]
  - Varicose vein [Unknown]
  - Fear [Unknown]
  - Product use complaint [Unknown]
  - Macular degeneration [Unknown]
  - Disability [Unknown]
  - Infusion site haemorrhage [Unknown]
  - Infusion site extravasation [Unknown]
  - Ligament rupture [Unknown]
  - Diarrhoea [Unknown]
  - Product use complaint [Unknown]
  - Off label use [Unknown]
  - Visual impairment [Unknown]
  - Fine motor skill dysfunction [Unknown]
  - Blood pressure systolic increased [Unknown]
  - Arthritis [Unknown]
  - Drug ineffective for unapproved indication [Unknown]
  - Wrong technique in product usage process [Unknown]
  - Unevaluable event [Unknown]
  - Arthritis [Unknown]
  - Limb injury [Unknown]
  - Dizziness postural [Unknown]
  - Product availability issue [Unknown]
  - Product use complaint [Unknown]
  - Stress [Unknown]
  - Crying [Unknown]
  - Musculoskeletal discomfort [Unknown]
  - Product use complaint [Unknown]
  - Fall [Unknown]
  - Wrong technique in product usage process [Unknown]
  - Poor venous access [Unknown]
  - Needle issue [Unknown]
